FAERS Safety Report 15093393 (Version 1)
Quarter: 2018Q2

REPORT INFORMATION
  Report Type: Spontaneous
  Country: US (occurrence: US)
  Receive Date: 20180629
  Receipt Date: 20180629
  Transmission Date: 20180711
  Serious: Yes (Other)
  Sender: FDA-Public Use
  Company Number: US-DUCHESNAY INC.-2051127

PATIENT
  Age: 76 Year
  Sex: Female

DRUGS (6)
  1. LIPITOR [Concomitant]
     Active Substance: ATORVASTATIN CALCIUM
  2. ESTRIOL [Concomitant]
     Active Substance: ESTRIOL
  3. OSPHENA [Suspect]
     Active Substance: OSPEMIFENE
     Indication: PRODUCT USED FOR UNKNOWN INDICATION
     Route: 048
     Dates: start: 20180605
  4. LUCENTIS [Concomitant]
     Active Substance: RANIBIZUMAB
  5. BUPROPION HYDROCHLORIDE SR [Concomitant]
     Active Substance: BUPROPION HYDROCHLORIDE
  6. RECLAST [Concomitant]
     Active Substance: ZOLEDRONIC ACID

REACTIONS (3)
  - Labelled drug-drug interaction medication error [Unknown]
  - Vaginal haemorrhage [Not Recovered/Not Resolved]
  - Rash [Not Recovered/Not Resolved]

NARRATIVE: CASE EVENT DATE: 20180607
